FAERS Safety Report 11411318 (Version 1)
Quarter: 2015Q3

REPORT INFORMATION
  Report Type: Spontaneous
  Country: US (occurrence: US)
  Receive Date: 20150821
  Receipt Date: 20150821
  Transmission Date: 20151125
  Serious: No
  Sender: FDA-Public Use
  Company Number: US-ELI_LILLY_AND_COMPANY-US201006002086

PATIENT
  Sex: Female

DRUGS (3)
  1. ANTIHYPERTENSIVES [Concomitant]
     Active Substance: UNSPECIFIED INGREDIENT
  2. HUMULIN N [Suspect]
     Active Substance: INSULIN HUMAN
     Indication: DIABETES MELLITUS
  3. NOVOLIN [Concomitant]
     Active Substance: INSULIN HUMAN

REACTIONS (6)
  - Influenza like illness [Not Recovered/Not Resolved]
  - Inflammation [Not Recovered/Not Resolved]
  - Hypertension [Unknown]
  - Renal disorder [Recovered/Resolved]
  - Drug dispensing error [Unknown]
  - Malaise [Not Recovered/Not Resolved]
